FAERS Safety Report 20706273 (Version 2)
Quarter: 2022Q2

REPORT INFORMATION
  Report Type: Spontaneous
  Country: ES (occurrence: ES)
  Receive Date: 20220413
  Receipt Date: 20220527
  Transmission Date: 20220721
  Serious: Yes (Hospitalization, Other)
  Sender: FDA-Public Use
  Company Number: ES-ELI_LILLY_AND_COMPANY-ES202204002126

PATIENT
  Sex: Male

DRUGS (17)
  1. FLUOXETINE HYDROCHLORIDE [Interacting]
     Active Substance: FLUOXETINE HYDROCHLORIDE
     Indication: Schizoaffective disorder
     Dosage: 20 MG, DAILY
     Route: 065
     Dates: start: 201604, end: 201606
  2. OLANZAPINE [Suspect]
     Active Substance: OLANZAPINE
     Indication: Schizoaffective disorder
     Dosage: 20 MG, DAILY
     Route: 065
     Dates: start: 201610, end: 201702
  3. OLANZAPINE [Suspect]
     Active Substance: OLANZAPINE
     Dosage: 20 MG, DAILY
     Route: 065
     Dates: start: 201705, end: 201712
  4. QUETIAPINE [Interacting]
     Active Substance: QUETIAPINE
     Indication: Schizoaffective disorder
     Dosage: 100 MG, DAILY
     Route: 065
     Dates: start: 201604, end: 201606
  5. HALOPERIDOL [Suspect]
     Active Substance: HALOPERIDOL
     Indication: Mania
     Dosage: UNK, UNKNOWN
     Route: 065
  6. AMISULPRIDE [Concomitant]
     Active Substance: AMISULPRIDE
     Indication: Schizoaffective disorder
     Dosage: 800 MG, DAILY
     Route: 065
     Dates: start: 201512, end: 201604
  7. AMISULPRIDE [Concomitant]
     Active Substance: AMISULPRIDE
     Dosage: 400 MG, DAILY
     Route: 065
     Dates: start: 1994, end: 201512
  8. LORAZEPAM [Concomitant]
     Active Substance: LORAZEPAM
     Indication: Schizoaffective disorder
     Dosage: UNK, UNKNOWN
     Route: 065
     Dates: start: 201604, end: 2016
  9. LORMETAZEPAM [Concomitant]
     Active Substance: LORMETAZEPAM
     Indication: Schizoaffective disorder
     Dosage: UNK, UNKNOWN
     Route: 065
     Dates: start: 201604, end: 2016
  10. LEVOMEPROMAZINE [Concomitant]
     Active Substance: LEVOMEPROMAZINE
     Indication: Schizoaffective disorder
  11. CLONAZEPAM [Concomitant]
     Active Substance: CLONAZEPAM
     Indication: Schizoaffective disorder
  12. ARIPIPRAZOLE [Concomitant]
     Active Substance: ARIPIPRAZOLE
     Indication: Schizoaffective disorder
  13. VALPROATE [Concomitant]
     Active Substance: VALPROIC ACID
     Indication: Schizoaffective disorder
  14. ESCITALOPRAM [Concomitant]
     Active Substance: ESCITALOPRAM OXALATE
     Indication: Schizoaffective disorder
  15. TRAZODONE [Concomitant]
     Active Substance: TRAZODONE HYDROCHLORIDE
     Indication: Schizoaffective disorder
  16. CITALOPRAM [Concomitant]
     Active Substance: CITALOPRAM HYDROBROMIDE
     Indication: Schizoaffective disorder
  17. LITHIUM [Concomitant]
     Active Substance: LITHIUM
     Indication: Schizoaffective disorder

REACTIONS (8)
  - Deep vein thrombosis [Unknown]
  - Gastrointestinal haemorrhage [Unknown]
  - Drug interaction [Unknown]
  - Drug level increased [Unknown]
  - Hyperprolactinaemia [Unknown]
  - Extrapyramidal disorder [Unknown]
  - Sedation [Unknown]
  - Insomnia [Unknown]

NARRATIVE: CASE EVENT DATE: 20160101
